FAERS Safety Report 5825889-0 (Version None)
Quarter: 2008Q3

REPORT INFORMATION
  Report Type: 
  Country: None (occurrence: None)
  Receive Date: 20080723
  Receipt Date: 20080711
  Transmission Date: 20090109
  Serious: Yes (Hospitalization, Other)
  Sender: FDA-Public Use
  Company Number: CHPA2008US03346

PATIENT
  Age: 86 Year
  Sex: Female

DRUGS (5)
  1. TRANSDERM SCOP [Suspect]
     Indication: MOTION SICKNESS
     Dosage: 1.5 MG, TRANSDERMAL
     Route: 062
     Dates: start: 20080120, end: 20080121
  2. COUMADIN [Concomitant]
  3. TRAMADOL HCL [Concomitant]
  4. TOPROL-XL [Concomitant]
  5. CARVEDIOL (CARVEDIOL) [Concomitant]

REACTIONS (13)
  - ABNORMAL BEHAVIOUR [None]
  - ANXIETY [None]
  - ARTHRALGIA [None]
  - BALANCE DISORDER [None]
  - CONFUSIONAL STATE [None]
  - CONTUSION [None]
  - DISTURBANCE IN ATTENTION [None]
  - FALL [None]
  - INCOHERENT [None]
  - INJURY [None]
  - PAIN [None]
  - PHYSICAL ASSAULT [None]
  - SOLILOQUY [None]
